FAERS Safety Report 12738034 (Version 2)
Quarter: 2016Q3

REPORT INFORMATION
  Report Type: Report from Study
  Country: US (occurrence: US)
  Receive Date: 20160913
  Receipt Date: 20160926
  Transmission Date: 20161109
  Serious: Yes (Hospitalization)
  Sender: FDA-Public Use
  Company Number: US-ROCHE-1828280

PATIENT
  Age: 69 Year
  Sex: Male
  Weight: 72.1 kg

DRUGS (8)
  1. RITUXIMAB [Suspect]
     Active Substance: RITUXIMAB
     Indication: NON-HODGKIN^S LYMPHOMA
     Dosage: DATE OF THE MOST RECENT DOSE OF RITUXIMAB 728 MG, PRIOR TO SAE ONSET WAS ADMINISTERD ON 22/JUN/2016
     Route: 042
     Dates: start: 20160225
  2. CARVEDILOL. [Concomitant]
     Active Substance: CARVEDILOL
     Indication: HYPERTENSION
  3. SODIUM CHLORIDE. [Concomitant]
     Active Substance: SODIUM CHLORIDE
     Indication: DEHYDRATION
     Route: 065
     Dates: start: 20160720, end: 20160722
  4. VENETOCLAX [Suspect]
     Active Substance: VENETOCLAX
     Indication: NON-HODGKIN^S LYMPHOMA
     Dosage: DATE OF THE MOST RECENT DOSE OF VENETOCLAX 800 MG, PRIOR TO SAE ONSET WAS ADMINISTERD ON 18/JUL/2016
     Route: 048
     Dates: start: 20160225
  5. ELIQUIS [Concomitant]
     Active Substance: APIXABAN
     Indication: ATRIAL FIBRILLATION
     Route: 065
     Dates: start: 20151228
  6. POTASSIUM CHLORIDE. [Concomitant]
     Active Substance: POTASSIUM CHLORIDE
     Indication: HYPOKALAEMIA
     Route: 065
     Dates: start: 20160718, end: 20160718
  7. BENDAMUSTINE [Suspect]
     Active Substance: BENDAMUSTINE
     Indication: NON-HODGKIN^S LYMPHOMA
     Dosage: DATE OF THE MOST RECENT DOSE OF BENDAMUSTINE 136 MG, PRIOR TO SAE ONSET WAS ADMINISTERD ON 23/JUN/2
     Route: 042
     Dates: start: 20160225
  8. CARVEDILOL. [Concomitant]
     Active Substance: CARVEDILOL
     Indication: ATRIAL FIBRILLATION
     Route: 048
     Dates: start: 20160129

REACTIONS (1)
  - Aplastic anaemia [Not Recovered/Not Resolved]

NARRATIVE: CASE EVENT DATE: 20160801
